FAERS Safety Report 8795983 (Version 3)
Quarter: 2012Q4

REPORT INFORMATION
  Report Type: 
  Country: US (occurrence: US)
  Receive Date: 20120920
  Receipt Date: 20121001
  Transmission Date: 20130627
  Serious: Yes (Other)
  Sender: FDA-Public Use
  Company Number: US-PFIZER INC-2012227410

PATIENT
  Age: 70 Year
  Sex: Female
  Weight: 62.5 kg

DRUGS (1)
  1. PREPARATION H [Suspect]
     Indication: SKIN DISORDER
     Dosage: UNK

REACTIONS (4)
  - Osteoarthritis [Unknown]
  - Off label use [Unknown]
  - Pre-existing condition improved [Unknown]
  - Therapeutic response unexpected [Unknown]
